FAERS Safety Report 15364754 (Version 2)
Quarter: 2018Q3

REPORT INFORMATION
  Report Type: Spontaneous
  Country: IT (occurrence: IT)
  Receive Date: 20180910
  Receipt Date: 20180927
  Transmission Date: 20181010
  Serious: No
  Sender: FDA-Public Use
  Company Number: IT-BIOGEN-2018BI00630059

PATIENT

DRUGS (1)
  1. PLEGRIDY [Suspect]
     Active Substance: PEGINTERFERON BETA-1A
     Indication: RELAPSING-REMITTING MULTIPLE SCLEROSIS
     Route: 058

REACTIONS (2)
  - Loss of control of legs [Not Recovered/Not Resolved]
  - Upper limb fracture [Not Recovered/Not Resolved]

NARRATIVE: CASE EVENT DATE: 20160813
